FAERS Safety Report 11552165 (Version 3)
Quarter: 2015Q4

REPORT INFORMATION
  Report Type: Spontaneous
  Country: US (occurrence: US)
  Receive Date: 20150925
  Receipt Date: 20151202
  Transmission Date: 20160304
  Serious: Yes (Hospitalization)
  Sender: FDA-Public Use
  Company Number: US-ACTELION PHARMACEUTICALS US, INC.-A-NJ2014-101618

PATIENT
  Age: 72 Year
  Sex: Male

DRUGS (4)
  1. VENTAVIS [Suspect]
     Active Substance: ILOPROST
     Indication: PULMONARY ARTERIAL HYPERTENSION
     Dosage: 5 MCG, 6-9 TIMES DALIY
     Route: 055
     Dates: start: 20140626
  2. COUMADIN [Concomitant]
     Active Substance: WARFARIN SODIUM
  3. LETAIRIS [Suspect]
     Active Substance: AMBRISENTAN
     Indication: PRODUCT USED FOR UNKNOWN INDICATION
     Dosage: 10 MG, UNK
     Route: 065
     Dates: start: 20140212
  4. SILDENAFIL. [Concomitant]
     Active Substance: SILDENAFIL

REACTIONS (11)
  - Hypotension [Unknown]
  - Asthenia [Unknown]
  - Dyspnoea [Unknown]
  - Diabetes mellitus [Unknown]
  - Device use error [Unknown]
  - Pulmonary oedema [Unknown]
  - Blood glucose fluctuation [Unknown]
  - Mobility decreased [Unknown]
  - Oxygen saturation decreased [Unknown]
  - Exercise tolerance decreased [Unknown]
  - Blood pressure decreased [Unknown]

NARRATIVE: CASE EVENT DATE: 20141101
